FAERS Safety Report 22113784 (Version 3)
Quarter: 2023Q1

REPORT INFORMATION
  Report Type: Spontaneous
  Country: AR (occurrence: AR)
  Receive Date: 20230320
  Receipt Date: 20230324
  Transmission Date: 20230418
  Serious: Yes (Hospitalization, Other)
  Sender: FDA-Public Use
  Company Number: AR-MYLANLABS-2023M1027821

PATIENT
  Sex: Female

DRUGS (4)
  1. CLOZAPINE [Suspect]
     Active Substance: CLOZAPINE
     Indication: Product used for unknown indication
     Dosage: UNK
     Route: 065
     Dates: start: 2013
  2. CLOZAPINE [Suspect]
     Active Substance: CLOZAPINE
     Dosage: UNK
     Route: 065
     Dates: start: 20230120
  3. VALPROIC ACID [Concomitant]
     Active Substance: VALPROIC ACID
     Dosage: UNK
     Route: 065
  4. METFORMIN [Concomitant]
     Active Substance: METFORMIN HYDROCHLORIDE
     Dosage: 500 MILLIGRAM, BID
     Route: 065

REACTIONS (6)
  - Pancreatitis [Unknown]
  - Neutropenia [Recovered/Resolved]
  - Eosinophil count increased [Not Recovered/Not Resolved]
  - Red blood cell count decreased [Recovering/Resolving]
  - Lymphocyte count increased [Recovering/Resolving]
  - Mean cell haemoglobin increased [Recovered/Resolved]

NARRATIVE: CASE EVENT DATE: 20220101
